FAERS Safety Report 20684489 (Version 2)
Quarter: 2022Q3

REPORT INFORMATION
  Report Type: Report from Study
  Country: BR (occurrence: BR)
  Receive Date: 20220407
  Receipt Date: 20220925
  Transmission Date: 20221027
  Serious: Yes (Hospitalization)
  Sender: FDA-Public Use
  Company Number: BR-JNJFOC-20220337571

PATIENT
  Age: 63 Year
  Sex: Male
  Weight: 120 kg

DRUGS (1)
  1. REMICADE [Suspect]
     Active Substance: INFLIXIMAB
     Indication: Ankylosing spondylitis
     Route: 041
     Dates: start: 20220225

REACTIONS (7)
  - Anaemia [Unknown]
  - Renal disorder [Unknown]
  - Arthritis [Unknown]
  - COVID-19 [Unknown]
  - Bacterial infection [Unknown]
  - Off label use [Unknown]
  - Product use issue [Unknown]
